FAERS Safety Report 6822056-9 (Version None)
Quarter: 2010Q3

REPORT INFORMATION
  Report Type: 
  Country: None (occurrence: None)
  Receive Date: 20100706
  Receipt Date: 20100621
  Transmission Date: 20110219
  Serious: Yes (Hospitalization)
  Sender: FDA-Public Use
  Company Number: 1000014809

PATIENT
  Age: 64 Year
  Sex: Female

DRUGS (11)
  1. NEBIVOLOL HCL [Suspect]
     Dosage: 5MG (5MG, 1 IN 1 D), ORAL
     Route: 048
  2. CITALOPRAM HYDROBROMIDE [Suspect]
     Indication: DEPRESSION
     Dosage: 20MG (20 MG, 1 IN 1D), ORAL
     Route: 048
  3. ARAVA [Suspect]
     Indication: RHEUMATOID ARTHRITIS
     Dosage: 20MG (20MG, 1 IN 1 D), ORAL
     Route: 048
     Dates: start: 20020101, end: 20091210
  4. HUMIRA [Suspect]
     Indication: RHEUMATOID ARTHRITIS
     Dosage: (40MG, EVERY 2 WEEKS), SUBCUTANEOUS
     Route: 058
     Dates: start: 20090401, end: 20100301
  5. CORTANCYL [Suspect]
     Dosage: 10MG (10MG, 1 IN 1D), ORAL
     Route: 048
  6. OMEPRAZOLE [Suspect]
     Dosage: 20MG (10MG, 1 IN 1D), ORAL
     Route: 048
  7. RIVOTRIL [Suspect]
     Indication: SLEEP DISORDER
     Dosage: 15MG (15MG, 1 IN 1 D), ORAL
     Route: 048
  8. XANAX [Suspect]
     Indication: ANXIETY
     Dosage: 0.5MG (0.5MG, 1 IN 1D) ORAL
     Route: 048
  9. ACTONEL [Suspect]
     Dosage: 5MG (35 MG 1 IN 1 WK), ORAL
     Route: 048
  10. TAREG [Suspect]
     Indication: HYPERTENSION
     Dosage: 160MG (160MG, 1 IN 1D) ORAL
     Route: 048
  11. DAFALGAN [Suspect]
     Dosage: 3 TO 4 G A DAY, ORAL
     Route: 048

REACTIONS (5)
  - DRUG INEFFECTIVE [None]
  - GAIT DISTURBANCE [None]
  - GASTROINTESTINAL DISORDER [None]
  - MUSCULAR WEAKNESS [None]
  - PERIPHERAL SENSORY NEUROPATHY [None]
